FAERS Safety Report 8307132-6 (Version None)
Quarter: 2012Q2

REPORT INFORMATION
  Report Type: 
  Country: None (occurrence: None)
  Receive Date: 20120424
  Receipt Date: 20120417
  Transmission Date: 20120825
  Serious: Yes (Other)
  Sender: FDA-Public Use
  Company Number: US-PFIZER INC-2012041367

PATIENT
  Sex: Male
  Weight: 74.83 kg

DRUGS (5)
  1. LIPITOR [Suspect]
     Indication: BLOOD CHOLESTEROL INCREASED
     Dosage: 40 MG, ONCE A DAY
     Route: 048
  2. HYDROCHLOROTHIAZIDE [Concomitant]
     Dosage: UNK
  3. TYLENOL (CAPLET) [Concomitant]
     Dosage: UNK
  4. LIPITOR [Suspect]
     Dosage: 20 MG, ONCE A DAY
     Route: 048
  5. LISINOPRIL [Concomitant]
     Dosage: UNK

REACTIONS (4)
  - PAIN IN EXTREMITY [None]
  - ARTHRALGIA [None]
  - SINUS DISORDER [None]
  - HYPERTHYROIDISM [None]
